FAERS Safety Report 9411914 (Version 2)
Quarter: 2013Q3

REPORT INFORMATION
  Report Type: Report from Study
  Country: NL (occurrence: NL)
  Receive Date: 20130722
  Receipt Date: 20130805
  Transmission Date: 20140515
  Serious: Yes (Death)
  Sender: FDA-Public Use
  Company Number: PHHY2013NL077096

PATIENT
  Sex: Male

DRUGS (9)
  1. ZOMETA [Suspect]
     Indication: METASTASES TO BONE
     Dosage: 4 MG, ONCE EVERY 4 WEEKS
     Route: 042
     Dates: start: 201303
  2. ZOMETA [Suspect]
     Dosage: 4 MG, PER 100ML, ONCE PER 4 WEEKS
     Route: 042
     Dates: start: 20130423
  3. ZOMETA [Suspect]
     Dosage: 4 MG, PER 100ML, ONCE PER 4 WEEKS
     Route: 042
     Dates: start: 20130524
  4. ZOMETA [Suspect]
     Dosage: 4 MG, PER 100ML, ONCE PER 4 WEEKS
     Route: 042
     Dates: start: 20130622
  5. PREDNISOLONE [Concomitant]
     Dosage: 10 G, DAILY
     Route: 048
  6. OMEPRAZOLE [Concomitant]
     Dosage: 40 MG, DAILY
     Route: 048
  7. FRAGMIN [Concomitant]
     Dosage: 15000 U, UNK
     Route: 058
  8. AMITRIPTYLIN [Concomitant]
     Dosage: 10 MG, BID
     Route: 048
  9. OXYCODONE [Concomitant]
     Dosage: 45 MG, BID
     Route: 048

REACTIONS (3)
  - Prostate cancer metastatic [Fatal]
  - Malignant neoplasm progression [Fatal]
  - Bone pain [Unknown]
